FAERS Safety Report 20830794 (Version 1)
Quarter: 2022Q2

REPORT INFORMATION
  Report Type: Report from Study
  Country: IT (occurrence: IT)
  Receive Date: 20220515
  Receipt Date: 20220515
  Transmission Date: 20220720
  Serious: Yes (Hospitalization)
  Sender: FDA-Public Use
  Company Number: None

PATIENT
  Age: 48 Year
  Sex: Female

DRUGS (3)
  1. DELORAZEPAM [Suspect]
     Active Substance: DELORAZEPAM
     Dosage: 2 DF, ABUSE / MISUSE
     Route: 048
     Dates: start: 20220411, end: 20220411
  2. ALPRAZOLAM [Suspect]
     Active Substance: ALPRAZOLAM
     Dosage: 2 DF, ABUSE / MISUSE
     Route: 048
     Dates: start: 20220411, end: 20220411
  3. FLURAZEPAM MONOHYDROCHLORIDE [Suspect]
     Active Substance: FLURAZEPAM MONOHYDROCHLORIDE
     Dosage: ABUSE / MISUSE, UNIT DOSE:330 MG, STRENGTH: 30 MG
     Route: 048
     Dates: start: 20220411, end: 20220411

REACTIONS (2)
  - Sopor [Recovering/Resolving]
  - Substance abuse [Recovering/Resolving]

NARRATIVE: CASE EVENT DATE: 20220411
